FAERS Safety Report 4642181-0 (Version None)
Quarter: 2005Q2

REPORT INFORMATION
  Report Type: 
  Country: None (occurrence: None)
  Receive Date: 20050421
  Receipt Date: 20050421
  Transmission Date: 20051028
  Serious: No
  Sender: FDA-Public Use
  Company Number: None

PATIENT

DRUGS (1)
  1. DURAGESIC-75 [Suspect]
     Indication: BACK PAIN
     Dosage: Q   3 DAY

REACTIONS (2)
  - FLUSHING [None]
  - SUNBURN [None]
